FAERS Safety Report 6347831-9 (Version None)
Quarter: 2009Q3

REPORT INFORMATION
  Report Type: 
  Country: None (occurrence: None)
  Receive Date: 20090910
  Receipt Date: 20090902
  Transmission Date: 20100115
  Serious: Yes (Life-Threatening, Hospitalization)
  Sender: FDA-Public Use
  Company Number: B0591117A

PATIENT
  Age: 22 Year
  Sex: Female

DRUGS (6)
  1. AMOXICILLIN AND CLAVULANATE POTASSIUM [Suspect]
     Indication: PROPHYLAXIS
     Route: 042
     Dates: start: 20090806, end: 20090806
  2. SYNTOCINON [Suspect]
     Route: 042
     Dates: start: 20090806, end: 20090806
  3. MARCAINE [Concomitant]
     Route: 008
     Dates: start: 20090806
  4. DIAMORPHINE [Concomitant]
     Route: 008
     Dates: start: 20090806
  5. LIGNOCAINE [Concomitant]
     Route: 061
     Dates: start: 20090806
  6. PHENYLEPHRINE [Concomitant]
     Indication: HYPOTENSION
     Route: 042
     Dates: start: 20090806, end: 20090806

REACTIONS (2)
  - ANAPHYLACTIC REACTION [None]
  - CARDIAC ARREST [None]
